FAERS Safety Report 25742395 (Version 2)
Quarter: 2025Q3

REPORT INFORMATION
  Report Type: Spontaneous
  Country: US (occurrence: US)
  Receive Date: 20250829
  Receipt Date: 20250903
  Transmission Date: 20251021
  Serious: Yes (Other)
  Sender: BRISTOL-MYERS SQUIBB COMPANY
  Company Number: US-BRISTOL-MYERS SQUIBB COMPANY-2024-180446

PATIENT
  Age: 53 Year
  Sex: Female

DRUGS (5)
  1. NIVOLUMAB [Suspect]
     Active Substance: NIVOLUMAB
     Indication: Metastatic malignant melanoma
     Dates: start: 20210801, end: 20221118
  2. DABRAFENIB [Suspect]
     Active Substance: DABRAFENIB
     Indication: Metastatic malignant melanoma
     Dates: start: 20220801, end: 20230410
  3. DABRAFENIB [Suspect]
     Active Substance: DABRAFENIB
     Dates: start: 20241105
  4. TRAMETINIB [Suspect]
     Active Substance: TRAMETINIB
     Indication: Metastatic malignant melanoma
     Dates: start: 20220801, end: 20230410
  5. TRAMETINIB [Suspect]
     Active Substance: TRAMETINIB
     Dates: start: 20241105

REACTIONS (3)
  - Sarcoid-like reaction [Unknown]
  - Acute kidney injury [Recovered/Resolved]
  - Hypercalcaemia [Recovered/Resolved]

NARRATIVE: CASE EVENT DATE: 20221201
